FAERS Safety Report 9915667 (Version 1)
Quarter: 2014Q1

REPORT INFORMATION
  Report Type: Spontaneous
  Country: ES (occurrence: ES)
  Receive Date: 20140221
  Receipt Date: 20140221
  Transmission Date: 20141002
  Serious: Yes (Other)
  Sender: FDA-Public Use
  Company Number: ES-ACCORD-021956

PATIENT
  Sex: 0

DRUGS (2)
  1. MYCOPHENOLIC ACID [Suspect]
     Indication: PRODUCT USED FOR UNKNOWN INDICATION
     Dosage: 500 MG TWICE PER DAY (BID) PRE-TRANSPLANT.
  2. SULFAMETHOXAZOLE/TRIMETHOPRIM [Concomitant]
     Indication: PROPHYLAXIS

REACTIONS (2)
  - Treatment noncompliance [Unknown]
  - Transplant rejection [Recovering/Resolving]
